FAERS Safety Report 8182346-7 (Version None)
Quarter: 2012Q1

REPORT INFORMATION
  Report Type: 
  Country: None (occurrence: None)
  Receive Date: 20120303
  Receipt Date: 20120223
  Transmission Date: 20120608
  Serious: Yes (Hospitalization)
  Sender: FDA-Public Use
  Company Number: US-AMGEN-USASP2012012133

PATIENT
  Age: 65 Year
  Sex: Female

DRUGS (1)
  1. ENBREL [Suspect]
     Indication: RHEUMATOID ARTHRITIS
     Dosage: 50 MG, QWK
     Dates: start: 20000119, end: 20110301

REACTIONS (4)
  - CORONARY ARTERY OCCLUSION [None]
  - HAND DEFORMITY [None]
  - CARDIAC MURMUR [None]
  - PAIN IN EXTREMITY [None]
